FAERS Safety Report 5900207-8 (Version None)
Quarter: 2008Q3

REPORT INFORMATION
  Report Type: 
  Country: None (occurrence: None)
  Receive Date: 20080926
  Receipt Date: 20080917
  Transmission Date: 20090109
  Serious: Yes (Other)
  Sender: FDA-Public Use
  Company Number: FR-BRISTOL-MYERS SQUIBB COMPANY-14344808

PATIENT
  Sex: Male

DRUGS (1)
  1. LYSODREN [Suspect]
     Indication: ADRENOCORTICAL CARCINOMA

REACTIONS (3)
  - DRUG LEVEL ABOVE THERAPEUTIC [None]
  - PELVIC VENOUS THROMBOSIS [None]
  - VENA CAVA THROMBOSIS [None]
